FAERS Safety Report 5870193-8 (Version None)
Quarter: 2008Q3

REPORT INFORMATION
  Report Type: 
  Country: None (occurrence: None)
  Receive Date: 20080904
  Receipt Date: 20080901
  Transmission Date: 20090109
  Serious: Yes (Hospitalization)
  Sender: FDA-Public Use
  Company Number: JP-EISAI MEDICAL RESEARCH-E2020-03299-CLI-JP

PATIENT
  Sex: Male

DRUGS (2)
  1. DONEPEZIL HCL [Suspect]
     Indication: DEMENTIA WITH LEWY BODIES
     Route: 048
     Dates: start: 20080611, end: 20080624
  2. DONEPEZIL HCL [Suspect]
     Route: 048
     Dates: start: 20080625, end: 20080831

REACTIONS (1)
  - PNEUMONIA ASPIRATION [None]
